FAERS Safety Report 5917920-9 (Version None)
Quarter: 2008Q4

REPORT INFORMATION
  Report Type: 
  Country: None (occurrence: None)
  Receive Date: 20081014
  Receipt Date: 20081002
  Transmission Date: 20090506
  Serious: Yes (Other)
  Sender: FDA-Public Use
  Company Number: IL-PFIZER INC-2008082679

PATIENT
  Age: 55 Year
  Sex: Female

DRUGS (4)
  1. CHANTIX [Suspect]
     Indication: SMOKING CESSATION THERAPY
  2. CIPRALEX [Concomitant]
  3. GASTRO [Concomitant]
  4. SYMBICORT [Concomitant]

REACTIONS (1)
  - DELIRIUM [None]
